FAERS Safety Report 4297376-5 (Version None)
Quarter: 2004Q1

REPORT INFORMATION
  Report Type: 
  Country: None (occurrence: None)
  Receive Date: 20040212
  Receipt Date: 20031009
  Transmission Date: 20041129
  Serious: Yes (Hospitalization)
  Sender: FDA-Public Use
  Company Number: A03200302391

PATIENT
  Age: 58 Year
  Sex: Female
  Weight: 56.6996 kg

DRUGS (2)
  1. AMBIEN [Suspect]
  2. SERTRALINE HCL [Concomitant]

REACTIONS (1)
  - CONVULSION [None]
